FAERS Safety Report 8810730 (Version 2)
Quarter: 2012Q4

REPORT INFORMATION
  Report Type: 
  Country: US (occurrence: US)
  Receive Date: 20120927
  Receipt Date: 20121113
  Transmission Date: 20130627
  Serious: Yes (Other)
  Sender: FDA-Public Use
  Company Number: US-PFIZER INC-2012237364

PATIENT
  Age: 67 Year
  Sex: Male

DRUGS (1)
  1. SUTENT [Suspect]
     Indication: MALIGNANT NEOPLASM OF KIDNEY, EXCEPT PELVIS
     Dosage: 50 mg, UNK
     Dates: start: 20120917

REACTIONS (5)
  - Pulmonary embolism [Unknown]
  - Heart rate increased [Unknown]
  - Fatigue [Unknown]
  - Headache [Unknown]
  - Rash [Unknown]
